FAERS Safety Report 8208098-X (Version None)
Quarter: 2012Q1

REPORT INFORMATION
  Report Type: 
  Country: None (occurrence: None)
  Receive Date: 20120314
  Receipt Date: 20120307
  Transmission Date: 20120608
  Serious: Yes (Hospitalization)
  Sender: FDA-Public Use
  Company Number: US-UCBSA-052952

PATIENT
  Sex: Female

DRUGS (1)
  1. CIMZIA [Suspect]
     Indication: RHEUMATOID ARTHRITIS
     Dosage: UNKNOWN DOSE; ONE INJECTION IN EACH THIGH
     Route: 058
     Dates: start: 20120305

REACTIONS (3)
  - CONTUSION [None]
  - FALL [None]
  - PRESYNCOPE [None]
